FAERS Safety Report 5369674-5 (Version None)
Quarter: 2007Q2

REPORT INFORMATION
  Report Type: 
  Country: None (occurrence: None)
  Receive Date: 20070625
  Receipt Date: 20070608
  Transmission Date: 20071010
  Serious: Yes (Hospitalization)
  Sender: FDA-Public Use
  Company Number: AU-BOEHRINGER INGELHEIM PHARMACEUTICALS, INC.-2007-BP-03522BP

PATIENT
  Sex: Female

DRUGS (4)
  1. MICARDIS HCT [Suspect]
     Indication: BLOOD PRESSURE
     Route: 048
     Dates: start: 20060101, end: 20060101
  2. CORTICOSTEROIDS [Concomitant]
  3. CYTOTOXICS [Concomitant]
  4. CALCIUM SUPPLEMENTS [Concomitant]

REACTIONS (12)
  - BACK PAIN [None]
  - BLOOD POTASSIUM DECREASED [None]
  - DISTURBANCE IN ATTENTION [None]
  - FATIGUE [None]
  - HEADACHE [None]
  - HYPERHIDROSIS [None]
  - NAUSEA [None]
  - POLLAKIURIA [None]
  - RASH [None]
  - SENSORY DISTURBANCE [None]
  - SYSTEMIC LUPUS ERYTHEMATOSUS [None]
  - WEIGHT DECREASED [None]
